FAERS Safety Report 4289283-9 (Version None)
Quarter: 2004Q1

REPORT INFORMATION
  Report Type: 
  Country: None (occurrence: None)
  Receive Date: 20040210
  Receipt Date: 20040203
  Transmission Date: 20041129
  Serious: Yes (Hospitalization)
  Sender: FDA-Public Use
  Company Number: FR-BRISTOL-MYERS SQUIBB COMPANY-12494795

PATIENT
  Age: 25 Year
  Sex: Female
  Weight: 69 kg

DRUGS (4)
  1. ZERIT [Suspect]
     Indication: HIV INFECTION
     Route: 048
  2. VIDEX [Suspect]
     Indication: HIV INFECTION
     Route: 048
  3. RETROVIR [Concomitant]
  4. BACTRIM [Concomitant]

REACTIONS (4)
  - BLOOD LACTIC ACID INCREASED [None]
  - NEUROPATHY [None]
  - OEDEMA PERIPHERAL [None]
  - PREGNANCY [None]
